FAERS Safety Report 6553893-6 (Version None)
Quarter: 2010Q1

REPORT INFORMATION
  Report Type: 
  Country: None (occurrence: None)
  Receive Date: 20100125
  Receipt Date: 20100125
  Transmission Date: 20100710
  Serious: Yes (Disabling)
  Sender: FDA-Public Use
  Company Number: None

PATIENT
  Age: 61 Year
  Sex: Male

DRUGS (1)
  1. HEPARIN [Suspect]
     Dosage: -1,000UNITS/500ML/IV
     Route: 042

REACTIONS (2)
  - THERAPEUTIC RESPONSE DECREASED [None]
  - WRONG TECHNIQUE IN DRUG USAGE PROCESS [None]
